FAERS Safety Report 13285846 (Version 1)
Quarter: 2017Q1

REPORT INFORMATION
  Report Type: Spontaneous
  Country: DE (occurrence: DE)
  Receive Date: 20170301
  Receipt Date: 20170301
  Transmission Date: 20170428
  Serious: Yes (Hospitalization, Other)
  Sender: FDA-Public Use
  Company Number: DE-SHIRE-DE201606068

PATIENT
  Age: 11 Year
  Sex: Female

DRUGS (1)
  1. ELVANSE [Suspect]
     Active Substance: LISDEXAMFETAMINE DIMESYLATE
     Indication: PRODUCT USED FOR UNKNOWN INDICATION
     Dosage: 30 MG, UNKNOWN (2X ON TWO SEPERATE DAYS)
     Route: 048
     Dates: start: 201604, end: 201604

REACTIONS (16)
  - Tongue movement disturbance [Unknown]
  - Abnormal behaviour [Not Recovered/Not Resolved]
  - Agitation [Recovered/Resolved]
  - Psychotic disorder [Unknown]
  - Psychomotor hyperactivity [Recovered/Resolved]
  - Gait disturbance [Unknown]
  - Disturbance in social behaviour [Unknown]
  - Personality change [Not Recovered/Not Resolved]
  - Altered state of consciousness [Not Recovered/Not Resolved]
  - Impulsive behaviour [Unknown]
  - Product use issue [Recovered/Resolved]
  - Speech disorder [Unknown]
  - Depressed mood [Recovered/Resolved]
  - Insomnia [Unknown]
  - Ataxia [Unknown]
  - Confusional state [Recovered/Resolved]

NARRATIVE: CASE EVENT DATE: 201604
